FAERS Safety Report 8853073 (Version 1)
Quarter: 2012Q4

REPORT INFORMATION
  Report Type: 
  Country: KR (occurrence: KR)
  Receive Date: 20121022
  Receipt Date: 20121022
  Transmission Date: 20130627
  Serious: Yes (Hospitalization)
  Sender: FDA-Public Use
  Company Number: PHHY2012KR091625

PATIENT
  Age: 49 Year
  Sex: Male

DRUGS (7)
  1. 5-FLUOROURACIL [Suspect]
     Dosage: 410 mg, QD
     Route: 042
  2. FERROUS SULFATE [Concomitant]
  3. ASPIRIN [Concomitant]
  4. FUROSEMIDE [Concomitant]
  5. MULTIVITAMINS [Concomitant]
  6. CALCIUM CARBONATE [Concomitant]
  7. ERYTHROPOIETIN [Concomitant]

REACTIONS (8)
  - Toxic encephalopathy [Recovered/Resolved]
  - Nausea [Recovered/Resolved]
  - Vomiting [Recovered/Resolved]
  - Coma [Recovered/Resolved]
  - Tremor [Recovered/Resolved]
  - Central nervous system lesion [Recovered/Resolved]
  - Eye movement disorder [Recovered/Resolved]
  - Irritability [Recovered/Resolved]
